FAERS Safety Report 6531967-3 (Version None)
Quarter: 2010Q1

REPORT INFORMATION
  Report Type: 
  Country: None (occurrence: None)
  Receive Date: 20100108
  Receipt Date: 20091228
  Transmission Date: 20100710
  Serious: Yes (Hospitalization)
  Sender: FDA-Public Use
  Company Number: FR-PFIZER INC-2009314664

PATIENT
  Age: 37 Year
  Sex: Female

DRUGS (10)
  1. SOLU-MEDROL [Suspect]
     Dosage: UNK
     Route: 042
     Dates: start: 20050101, end: 20091123
  2. INTERFERON [Concomitant]
  3. COPAXONE [Concomitant]
  4. IMUREL [Concomitant]
  5. PROZAC [Concomitant]
  6. ATARAX [Concomitant]
  7. RIVOTRIL [Concomitant]
  8. STILNOX [Concomitant]
  9. LEXOMIL [Concomitant]
  10. POLARAMINE [Concomitant]

REACTIONS (3)
  - ABDOMINAL PAIN [None]
  - DYSPNOEA [None]
  - PRURITUS [None]
